FAERS Safety Report 4809902-5 (Version None)
Quarter: 2005Q4

REPORT INFORMATION
  Report Type: 
  Country: None (occurrence: None)
  Receive Date: 20051024
  Receipt Date: 20040721
  Transmission Date: 20060501
  Serious: Yes (Hospitalization)
  Sender: FDA-Public Use
  Company Number: 200094

PATIENT
  Age: 57 Year
  Sex: Male
  Weight: 182 kg

DRUGS (8)
  1. AVONEX [Suspect]
     Dosage: 30 UG;QW; IM
     Route: 030
     Dates: start: 20020207, end: 20031101
  2. AVONEX [Suspect]
     Dosage: 30 UG;QW; IM
     Route: 030
     Dates: start: 20031101
  3. PLAVIX [Concomitant]
  4. ASPIRIN [Concomitant]
  5. REGLAN [Concomitant]
  6. NEXIUM [Concomitant]
  7. LIPITOR [Concomitant]
  8. MULTI-VITAMINS [Concomitant]

REACTIONS (12)
  - ACTIVATED PARTIAL THROMBOPLASTIN TIME PROLONGED [None]
  - ACUTE CORONARY SYNDROME [None]
  - BACK PAIN [None]
  - CARDIOMEGALY [None]
  - CHRONIC OBSTRUCTIVE PULMONARY DISEASE [None]
  - CORONARY ANGIOPLASTY [None]
  - CORONARY ARTERY OCCLUSION [None]
  - CORONARY ARTERY STENOSIS [None]
  - CREATINE PHOSPHOKINASE DECREASED [None]
  - HAEMATOCRIT DECREASED [None]
  - SPINAL COMPRESSION FRACTURE [None]
  - VENTRICULAR HYPOKINESIA [None]
